FAERS Safety Report 21475505 (Version 3)
Quarter: 2022Q4

REPORT INFORMATION
  Report Type: Spontaneous
  Country: US (occurrence: US)
  Receive Date: 20221019
  Receipt Date: 20221117
  Transmission Date: 20230113
  Serious: Yes (Hospitalization, Other)
  Sender: FDA-Public Use
  Company Number: US-GLAXOSMITHKLINE-US2022AMR148284

PATIENT

DRUGS (21)
  1. ZEJULA [Suspect]
     Active Substance: NIRAPARIB
     Indication: Ovarian cancer
     Dosage: 300 MG, QD
     Route: 048
     Dates: start: 20220211
  2. ZEJULA [Suspect]
     Active Substance: NIRAPARIB
     Dosage: 300 MG, QD
     Route: 048
  3. SODIUM CHLORIDE NASAL SPRAY [Concomitant]
     Indication: Product used for unknown indication
     Dosage: UNK
  4. ALBUTEROL SULFATE [Concomitant]
     Active Substance: ALBUTEROL SULFATE
     Indication: Product used for unknown indication
     Dosage: UNK
  5. SENNA-S [Concomitant]
     Active Substance: DOCUSATE SODIUM\SENNOSIDES
     Indication: Product used for unknown indication
     Dosage: 8.6MG-50MG
  6. CYANOCOBALAMIN [Concomitant]
     Active Substance: CYANOCOBALAMIN
     Indication: Product used for unknown indication
     Dosage: UNK
  7. LORAZEPAM [Concomitant]
     Active Substance: LORAZEPAM
     Indication: Product used for unknown indication
     Dosage: 1 MG
  8. LOPERAMIDE [Concomitant]
     Active Substance: LOPERAMIDE
     Indication: Product used for unknown indication
     Dosage: 2 MG
  9. FAMOTIDINE [Concomitant]
     Active Substance: FAMOTIDINE
     Indication: Product used for unknown indication
     Dosage: 20 MG
  10. MORPHINE SULFATE [Concomitant]
     Active Substance: MORPHINE SULFATE
     Indication: Product used for unknown indication
     Dosage: 30 MG
  11. PROMETHAZINE HYDROCHLORIDE [Concomitant]
     Active Substance: PROMETHAZINE HYDROCHLORIDE
     Indication: Product used for unknown indication
     Dosage: 125 MG
  12. ONDANSETRON HYDROCHLORIDE [Concomitant]
     Active Substance: ONDANSETRON HYDROCHLORIDE
     Indication: Product used for unknown indication
     Dosage: 8 MG
  13. ONDANSETRON HYDROCHLORIDE [Concomitant]
     Active Substance: ONDANSETRON HYDROCHLORIDE
     Indication: Product used for unknown indication
  14. LATANOPROST [Concomitant]
     Active Substance: LATANOPROST
     Indication: Product used for unknown indication
     Dosage: UNK
  15. BRIMONIDINE TARTRATE EYE DROPS [Concomitant]
     Indication: Product used for unknown indication
     Dosage: UNK
  16. DORZOLAMIDE HYDROCHLORIDE [Concomitant]
     Active Substance: DORZOLAMIDE HYDROCHLORIDE
     Indication: Product used for unknown indication
     Dosage: UNK
  17. ELIQUIS [Concomitant]
     Active Substance: APIXABAN
     Indication: Product used for unknown indication
     Dosage: 5 MG
  18. OXYCODONE HYDROCHLORIDE [Concomitant]
     Active Substance: OXYCODONE HYDROCHLORIDE
     Indication: Product used for unknown indication
     Dosage: 10 MG
  19. ACETAMINOPHEN\BUTABARBITAL\CAFFEINE [Concomitant]
     Active Substance: ACETAMINOPHEN\BUTABARBITAL\CAFFEINE
     Indication: Product used for unknown indication
     Dosage: UNK
  20. IRBESARTAN [Concomitant]
     Active Substance: IRBESARTAN
     Indication: Product used for unknown indication
     Dosage: 150 MG
  21. LEVOTHYROXINE [Concomitant]
     Active Substance: LEVOTHYROXINE
     Indication: Product used for unknown indication
     Dosage: 125 UG

REACTIONS (12)
  - Rectal haemorrhage [Unknown]
  - Colon neoplasm [Unknown]
  - Malaise [Unknown]
  - Adverse drug reaction [Unknown]
  - Constipation [Unknown]
  - Headache [Unknown]
  - Vomiting [Unknown]
  - Muscle spasms [Unknown]
  - Nausea [Unknown]
  - Blood pressure increased [Unknown]
  - Fatigue [Unknown]
  - Product dose omission issue [Unknown]
